FAERS Safety Report 18587120 (Version 1)
Quarter: 2020Q4

REPORT INFORMATION
  Report Type: Other
  Country: US (occurrence: US)
  Receive Date: 20201207
  Receipt Date: 20201207
  Transmission Date: 20210114
  Serious: Yes (Other)
  Sender: FDA-Public Use
  Company Number: US-ROCHE-2684422

PATIENT
  Age: 68 Year
  Sex: Male

DRUGS (1)
  1. DIAZEPAM. [Suspect]
     Active Substance: DIAZEPAM
     Indication: WITHDRAWAL SYNDROME
     Dosage: OVER 24 HOURS
     Route: 042

REACTIONS (1)
  - Coma [Recovered/Resolved]
